FAERS Safety Report 23617193 (Version 1)
Quarter: 2024Q1

REPORT INFORMATION
  Report Type: Spontaneous
  Country: ES (occurrence: ES)
  Receive Date: 20240311
  Receipt Date: 20240311
  Transmission Date: 20240410
  Serious: Yes (Other)
  Sender: FDA-Public Use
  Company Number: None

PATIENT
  Age: 94 Year
  Sex: Female
  Weight: 75 kg

DRUGS (12)
  1. MOXIFLOXACIN [Suspect]
     Active Substance: MOXIFLOXACIN
     Indication: Bronchitis
     Dosage: 5 TABLETS
     Route: 048
     Dates: start: 20240124, end: 20240128
  2. FUROSEMIDE [Concomitant]
     Active Substance: FUROSEMIDE
     Indication: Product used for unknown indication
     Dosage: 30 TABLETS
     Route: 048
     Dates: start: 20231212
  3. OMEPRAZOLE [Concomitant]
     Active Substance: OMEPRAZOLE
     Indication: Product used for unknown indication
     Dosage: 28 CAPSULES
     Route: 048
     Dates: start: 20210602
  4. PENTOXIFYLLINE [Concomitant]
     Active Substance: PENTOXIFYLLINE
     Indication: Product used for unknown indication
     Dosage: EXTENDED RELEASE TABLETS, 60 TABLETS
     Route: 048
     Dates: start: 20210612
  5. DEPRAX [Concomitant]
     Indication: Product used for unknown indication
     Dosage: EFG FILM-COATED TABLETS, 30 TABLETS
     Route: 048
     Dates: start: 20240124
  6. ESCITALOPRAM [Concomitant]
     Active Substance: ESCITALOPRAM OXALATE
     Indication: Product used for unknown indication
     Dosage: 28 TABLETS
     Route: 048
     Dates: start: 20210602
  7. ENSTILAR [Concomitant]
     Active Substance: BETAMETHASONE DIPROPIONATE\CALCIPOTRIENE HYDRATE
     Indication: Product used for unknown indication
     Dosage: 50 MICROGRAMS/G + 0.5 MG/G SKIN FOAM, 60 G
     Route: 003
     Dates: start: 20210602, end: 20210602
  8. ASPIRIN [Concomitant]
     Active Substance: ASPIRIN
     Indication: Product used for unknown indication
     Dosage: 30 TABLETS (PVC-ALUMINUM)
     Route: 048
     Dates: start: 20191018
  9. ACETAMINOPHEN [Concomitant]
     Active Substance: ACETAMINOPHEN
     Indication: Product used for unknown indication
     Dosage: 40 TABLETS
     Route: 048
     Dates: start: 20210602
  10. CALCIUM CARBONATE\CHOLECALCIFEROL [Concomitant]
     Active Substance: CALCIUM CARBONATE\CHOLECALCIFEROL
     Indication: Product used for unknown indication
     Dosage: TIME INTERVAL: TOTAL: 1000 MG/880 IU EFFERVESCENT GRANULATED, 30 SACHETS
     Route: 048
     Dates: start: 20210602
  11. SIMVASTATIN [Concomitant]
     Active Substance: SIMVASTATIN
     Indication: Product used for unknown indication
     Dosage: 28 TABLETS
     Route: 048
     Dates: start: 20211011
  12. ISODIUR HTA [Concomitant]
     Indication: Product used for unknown indication
     Dosage: 30 TABLETS
     Route: 048
     Dates: start: 20210602

REACTIONS (3)
  - Tachycardia [Unknown]
  - Hypertension [Unknown]
  - Back pain [Unknown]

NARRATIVE: CASE EVENT DATE: 20240126
